FAERS Safety Report 5040818-8 (Version None)
Quarter: 2006Q2

REPORT INFORMATION
  Report Type: 
  Country: None (occurrence: None)
  Receive Date: 20060629
  Receipt Date: 20060629
  Transmission Date: 20061013
  Serious: Yes (Life-Threatening)
  Sender: FDA-Public Use
  Company Number: None

PATIENT
  Sex: Female
  Weight: 72.5755 kg

DRUGS (3)
  1. PROMETHAZINE [Suspect]
     Indication: NAUSEA
     Dosage: 25MG  ONE TIME   IV BOLUS
     Route: 040
     Dates: start: 20060627, end: 20060627
  2. PROMETHAZINE [Suspect]
     Indication: VOMITING
     Dosage: 25MG  ONE TIME   IV BOLUS
     Route: 040
     Dates: start: 20060627, end: 20060627
  3. PROMETHAZINE [Suspect]

REACTIONS (7)
  - BODY TEMPERATURE INCREASED [None]
  - CONFUSIONAL STATE [None]
  - ENCEPHALITIS [None]
  - HALLUCINATION [None]
  - NYSTAGMUS [None]
  - SKIN DISCOLOURATION [None]
  - TREMOR [None]
